FAERS Safety Report 12410557 (Version 3)
Quarter: 2017Q4

REPORT INFORMATION
  Report Type: Spontaneous
  Country: US (occurrence: US)
  Receive Date: 20160527
  Receipt Date: 20171031
  Transmission Date: 20180320
  Serious: Yes (Other)
  Sender: FDA-Public Use
  Company Number: US-SUN PHARMACEUTICAL INDUSTRIES LTD-2016US-117258

PATIENT
  Age: 37 Year
  Sex: Male

DRUGS (1)
  1. IBUPROFEN. [Suspect]
     Active Substance: IBUPROFEN
     Indication: PRODUCT USED FOR UNKNOWN INDICATION
     Dosage: 30 PILLS (400 MG) WITH A TOTAL DOSE OF 12 G
     Route: 048

REACTIONS (8)
  - Ocular icterus [Unknown]
  - Muscular weakness [Unknown]
  - Vitiligo [Unknown]
  - Conjunctivitis [Unknown]
  - Thrombotic thrombocytopenic purpura [Unknown]
  - Unresponsive to stimuli [Unknown]
  - Overdose [Unknown]
  - Suicide attempt [Unknown]
